FAERS Safety Report 19480472 (Version 1)
Quarter: 2021Q3

REPORT INFORMATION
  Report Type: Spontaneous
  Country: US (occurrence: US)
  Receive Date: 20210701
  Receipt Date: 20210701
  Transmission Date: 20211014
  Serious: No
  Sender: FDA-Public Use
  Company Number: US-TOLMAR, INC.-21US027499

PATIENT
  Age: 49 Year
  Sex: Male

DRUGS (3)
  1. KETOCONAZOLE. [Suspect]
     Active Substance: KETOCONAZOLE
     Indication: ALOPECIA
     Dosage: 1 DOSAGE FORM, QOD
     Route: 003
     Dates: end: 202105
  2. MULTAQ [Concomitant]
     Active Substance: DRONEDARONE
     Indication: ARRHYTHMIA
     Dosage: UNK
  3. MULTAQ [Concomitant]
     Active Substance: DRONEDARONE
     Indication: TACHYCARDIA

REACTIONS (1)
  - Contraindicated product administered [Unknown]
